FAERS Safety Report 5627439-0 (Version None)
Quarter: 2008Q1

REPORT INFORMATION
  Report Type: 
  Country: None (occurrence: None)
  Receive Date: 20080214
  Receipt Date: 20080214
  Transmission Date: 20080703
  Serious: Yes (Other)
  Sender: FDA-Public Use
  Company Number: None

PATIENT
  Sex: Male
  Weight: 81.6475 kg

DRUGS (1)
  1. REMICADE [Suspect]
     Indication: CROHN'S DISEASE
     Dosage: Q-8 WEEKS IV
     Route: 042
     Dates: start: 20051201, end: 20080201

REACTIONS (3)
  - ABNORMAL BEHAVIOUR [None]
  - DELUSION [None]
  - PERSONALITY CHANGE [None]
